FAERS Safety Report 8542317-5 (Version None)
Quarter: 2012Q3

REPORT INFORMATION
  Report Type: 
  Country: None (occurrence: None)
  Receive Date: 20120726
  Receipt Date: 20110926
  Transmission Date: 20120928
  Serious: No
  Sender: FDA-Public Use
  Company Number: US-ASTRAZENECA-2011SE55223

PATIENT
  Age: 51 Year
  Sex: Male
  Weight: 79.4 kg

DRUGS (7)
  1. SEROQUEL [Suspect]
     Route: 048
  2. ZOLOFT [Concomitant]
     Indication: FEELING OF RELAXATION
  3. CLONAZEPAM [Concomitant]
     Indication: SLEEP DISORDER
  4. SEROQUEL [Suspect]
     Indication: DEPRESSION
     Route: 048
     Dates: start: 20100901
  5. SEROQUEL [Suspect]
     Route: 048
  6. SEROQUEL [Suspect]
     Indication: SLEEP DISORDER
     Route: 048
     Dates: start: 20100901
  7. SYNTHROID [Concomitant]
     Indication: THYROID DISORDER

REACTIONS (5)
  - DEPRESSION [None]
  - HEAD INJURY [None]
  - DRUG DOSE OMISSION [None]
  - INSOMNIA [None]
  - FATIGUE [None]
